FAERS Safety Report 23751827 (Version 1)
Quarter: 2024Q2

REPORT INFORMATION
  Report Type: Spontaneous
  Country: US (occurrence: US)
  Receive Date: 20240417
  Receipt Date: 20240417
  Transmission Date: 20240715
  Serious: No
  Sender: FDA-Public Use
  Company Number: US-BAYER-2024A055233

PATIENT
  Sex: Female

DRUGS (1)
  1. ASTEPRO [Suspect]
     Active Substance: AZELASTINE HYDROCHLORIDE
     Dosage: 2 SPRAYS IN EACH NOSTRIL ONCE A DAY
     Route: 055

REACTIONS (1)
  - Drug ineffective [Unknown]
